FAERS Safety Report 24668269 (Version 1)
Quarter: 2024Q4

REPORT INFORMATION
  Report Type: Spontaneous
  Country: US (occurrence: US)
  Receive Date: 20241127
  Receipt Date: 20241127
  Transmission Date: 20250115
  Serious: Yes (Hospitalization, Other)
  Sender: CHEPLAPHARM
  Company Number: US-CHEPLA-2024014663

PATIENT
  Age: 18 Year
  Sex: Male

DRUGS (11)
  1. GANCICLOVIR [Suspect]
     Active Substance: GANCICLOVIR
     Indication: Evidence based treatment
  2. CEFTRIAXONE [Suspect]
     Active Substance: CEFTRIAXONE
     Indication: Evidence based treatment
  3. METRONIDAZOLE [Suspect]
     Active Substance: METRONIDAZOLE
     Indication: Evidence based treatment
  4. VANCOMYCIN [Suspect]
     Active Substance: VANCOMYCIN
     Indication: Evidence based treatment
  5. DOXYCYCLINE [Suspect]
     Active Substance: DOXYCYCLINE
     Indication: Evidence based treatment
  6. DEXAMETHASONE [Suspect]
     Active Substance: DEXAMETHASONE
     Dosage: SMILE REGIMEN
  7. METHOTREXATE [Suspect]
     Active Substance: METHOTREXATE
     Dosage: SMILE REGIMEN
  8. IFOSFAMIDE [Suspect]
     Active Substance: IFOSFAMIDE
     Dosage: SMILE REGIMEN
  9. ASPARAGINASE [Suspect]
     Active Substance: ASPARAGINASE
     Dosage: SMILE REGIMEN
  10. ETOPOSIDE [Suspect]
     Active Substance: ETOPOSIDE
     Dosage: SMILE REGIMEN
  11. ACETAMINOPHEN [Concomitant]
     Active Substance: ACETAMINOPHEN

REACTIONS (6)
  - Multiple organ dysfunction syndrome [Unknown]
  - Distributive shock [Unknown]
  - Epstein-Barr virus associated lymphoma [Unknown]
  - Haemophagocytic lymphohistiocytosis [Unknown]
  - Thrombocytopenia [Unknown]
  - Respiratory disorder [Unknown]
